FAERS Safety Report 4304104-3 (Version None)
Quarter: 2004Q1

REPORT INFORMATION
  Report Type: 
  Country: None (occurrence: None)
  Receive Date: 20040223
  Receipt Date: 20031202
  Transmission Date: 20041129
  Serious: No
  Sender: FDA-Public Use
  Company Number: PHEH2003US11016

PATIENT
  Age: 42 Year
  Sex: Female

DRUGS (5)
  1. ZELNORM [Suspect]
     Indication: IRRITABLE BOWEL SYNDROME
     Dosage: BID, ORAL
     Route: 048
     Dates: start: 20030701, end: 20030801
  2. PROZAC [Concomitant]
  3. FAMVIR [Concomitant]
  4. DECONGESTANTS AND ANTIALLERGICS [Concomitant]
  5. VITAMINS NOS [Concomitant]

REACTIONS (3)
  - BACTERIAL INFECTION [None]
  - CONSTIPATION [None]
  - DYSPHAGIA [None]
